FAERS Safety Report 7741365-2 (Version None)
Quarter: 2011Q3

REPORT INFORMATION
  Report Type: 
  Country: None (occurrence: None)
  Receive Date: 20110909
  Receipt Date: 20110907
  Transmission Date: 20111222
  Serious: No
  Sender: FDA-Public Use
  Company Number: US-PFIZER INC-2011209663

PATIENT
  Sex: Female

DRUGS (2)
  1. SERTRALINE HYDROCHLORIDE [Suspect]
     Indication: HOT FLUSH
     Dosage: 5 MG, UNK
  2. SERTRALINE HYDROCHLORIDE [Suspect]
     Indication: MENOPAUSE

REACTIONS (2)
  - HOT FLUSH [None]
  - MENOPAUSE [None]
